FAERS Safety Report 9467653 (Version 1)
Quarter: 2013Q3

REPORT INFORMATION
  Report Type: Spontaneous
  Country: US (occurrence: None)
  Receive Date: 20130819
  Receipt Date: 20130819
  Transmission Date: 20140515
  Serious: Yes (Other)
  Sender: FDA-Public Use
  Company Number: None

PATIENT
  Age: 41 Year
  Sex: Female
  Weight: 72.58 kg

DRUGS (2)
  1. SERTRALINE [Suspect]
     Indication: ANXIETY
     Dosage: 1-3 PILLS PER DAY INCREASING   ONCE DAILY  TAKEN BY MOUTH
     Route: 048
     Dates: start: 20130724, end: 20130817
  2. SERTRALINE [Suspect]
     Indication: INSOMNIA
     Dosage: 1-3 PILLS PER DAY INCREASING   ONCE DAILY  TAKEN BY MOUTH
     Route: 048
     Dates: start: 20130724, end: 20130817

REACTIONS (5)
  - Feeling abnormal [None]
  - Irritability [None]
  - Fear [None]
  - Sinusitis [None]
  - Suicidal ideation [None]
